FAERS Safety Report 5493471-3 (Version None)
Quarter: 2007Q4

REPORT INFORMATION
  Report Type: 
  Country: None (occurrence: None)
  Receive Date: 20071023
  Receipt Date: 20071010
  Transmission Date: 20080405
  Serious: Yes (Hospitalization)
  Sender: FDA-Public Use
  Company Number: ES-ELI_LILLY_AND_COMPANY-ES200710002812

PATIENT
  Age: 83 Year
  Sex: Female

DRUGS (13)
  1. FORTEO [Suspect]
     Indication: OSTEOPOROSIS
     Dosage: 20 UG, DAILY (1/D)
     Route: 058
     Dates: start: 20070918, end: 20070928
  2. OMAPREN [Concomitant]
  3. KARVEA [Concomitant]
     Dosage: 75 MG, UNK
  4. AMERIDE [Concomitant]
  5. FOLAXIN [Concomitant]
  6. DACORTIN [Concomitant]
     Dosage: 5 UNK, UNK
  7. XUMADOL [Concomitant]
     Dosage: 1 G, UNK
  8. SINTROM [Concomitant]
  9. TRANSTEC [Concomitant]
     Dosage: 70 UNK, UNK
  10. TRAMADOL HCL [Concomitant]
  11. NOLOTIL [Concomitant]
  12. GABAPENTIN [Concomitant]
     Dosage: 300 UNK, UNK
  13. ENALAPRIL MALEATE [Concomitant]
     Dosage: 2.5 MG, UNK

REACTIONS (4)
  - ARRHYTHMIA [None]
  - DYSPNOEA [None]
  - FATIGUE [None]
  - INFLAMMATION [None]
